FAERS Safety Report 17932400 (Version 1)
Quarter: 2020Q2

REPORT INFORMATION
  Report Type: Spontaneous
  Country: US (occurrence: US)
  Receive Date: 20200624
  Receipt Date: 20200624
  Transmission Date: 20200714
  Serious: No
  Sender: FDA-Public Use
  Company Number: US-PRINSTON PHARMACEUTICAL INC.-2019PRN00836

PATIENT
  Sex: Male
  Weight: 65.31 kg

DRUGS (6)
  1. LOSARTAN POTASSIUM (AUROBINDO) [Suspect]
     Active Substance: LOSARTAN POTASSIUM
     Indication: BLOOD PRESSURE MEASUREMENT
     Dosage: 25 MG, 1X/DAY
     Route: 048
  2. METOPROLOL (MFG UNKNOWN) [Suspect]
     Active Substance: METOPROLOL
  3. TAMSULOSIN [Concomitant]
     Active Substance: TAMSULOSIN
  4. AMOXAPINE. [Concomitant]
     Active Substance: AMOXAPINE
  5. ATORVASTATIN (MFG UNKNOWN) [Suspect]
     Active Substance: ATORVASTATIN
  6. LOSARTAN POTASSIUM. [Suspect]
     Active Substance: LOSARTAN POTASSIUM
     Indication: BLOOD PRESSURE ABNORMAL
     Dosage: 25 MG, 1X/DAY
     Route: 048
     Dates: start: 201812

REACTIONS (2)
  - Sleep disorder [Not Recovered/Not Resolved]
  - Abnormal dreams [Not Recovered/Not Resolved]
